FAERS Safety Report 9128834 (Version 1)
Quarter: 2013Q1

REPORT INFORMATION
  Report Type: Spontaneous
  Country: ES (occurrence: ES)
  Receive Date: 20130125
  Receipt Date: 20130125
  Transmission Date: 20140127
  Serious: Yes (Other)
  Sender: FDA-Public Use
  Company Number: ES-PFIZER INC-2013025330

PATIENT
  Age: 70 Year
  Sex: Female

DRUGS (5)
  1. ZYVOXID [Suspect]
     Indication: PNEUMONIA
     Dosage: 600 MG, 2X/DAY
     Route: 048
     Dates: start: 20120917, end: 20120919
  2. ZYVOXID [Interacting]
     Dosage: 600 MG, 2X/DAY
     Route: 042
     Dates: start: 20120920, end: 20121001
  3. AMIKACIN [Interacting]
     Indication: PNEUMONIA
     Dosage: 500 MG, 2X/DAY
     Route: 042
     Dates: start: 20120919, end: 20121002
  4. AMIKACIN [Interacting]
     Dosage: 750 MG, 1X/DAY
     Route: 042
     Dates: start: 20121003, end: 20121015
  5. TIENAM [Interacting]
     Indication: PNEUMONIA
     Dosage: 1000 MG, 3X/DAY
     Route: 042
     Dates: start: 20120917, end: 20121023

REACTIONS (2)
  - Thrombocytopenia [Recovered/Resolved]
  - Drug interaction [Recovered/Resolved]
